FAERS Safety Report 8064462-3 (Version None)
Quarter: 2012Q1

REPORT INFORMATION
  Report Type: 
  Country: None (occurrence: None)
  Receive Date: 20120123
  Receipt Date: 20120113
  Transmission Date: 20120608
  Serious: Yes (Other)
  Sender: FDA-Public Use
  Company Number: PHHY2012FR003936

PATIENT
  Age: 19 Year
  Sex: Male

DRUGS (3)
  1. RITALIN [Suspect]
     Indication: ATTENTION DEFICIT/HYPERACTIVITY DISORDER
     Dosage: 40 MG, QD
     Dates: start: 20110501, end: 20110601
  2. RITALIN [Suspect]
     Dates: start: 20110801
  3. CURACNE [Concomitant]

REACTIONS (4)
  - MICROANGIOPATHY [None]
  - HEADACHE [None]
  - CHEST DISCOMFORT [None]
  - SUFFOCATION FEELING [None]
